FAERS Safety Report 6151599-9 (Version None)
Quarter: 2009Q2

REPORT INFORMATION
  Report Type: 
  Country: None (occurrence: None)
  Receive Date: 20090410
  Receipt Date: 20090401
  Transmission Date: 20091009
  Serious: Yes (Other)
  Sender: FDA-Public Use
  Company Number: GB-PFIZER INC-2009187322

PATIENT

DRUGS (5)
  1. CELEBREX [Suspect]
     Dosage: 100 MG, 2X/DAY
     Route: 048
     Dates: start: 20040427, end: 20090224
  2. LOSARTAN [Concomitant]
     Dosage: 50 MG, 1X/DAY
     Route: 048
     Dates: start: 20070823
  3. ALENDRONIC ACID [Concomitant]
     Dosage: 70 MG, WEEKLY
     Route: 048
     Dates: start: 20070814
  4. ADCAL-D3 [Concomitant]
     Dosage: 2 DF, 2X/DAY
     Route: 048
     Dates: start: 20070814
  5. PARACETAMOL [Concomitant]
     Dosage: UNK

REACTIONS (5)
  - LEFT ATRIAL DILATATION [None]
  - MITRAL VALVE DISEASE [None]
  - MITRAL VALVE INCOMPETENCE [None]
  - TRICUSPID VALVE INCOMPETENCE [None]
  - VENTRICULAR EXTRASYSTOLES [None]
